FAERS Safety Report 13433246 (Version 5)
Quarter: 2017Q2

REPORT INFORMATION
  Report Type: Spontaneous
  Country: BE (occurrence: BE)
  Receive Date: 20170412
  Receipt Date: 20170504
  Transmission Date: 20170830
  Serious: Yes (Death, Hospitalization)
  Sender: FDA-Public Use
  Company Number: BE-SA-2017SA059995

PATIENT
  Sex: Female

DRUGS (9)
  1. GLURENORM [Concomitant]
     Indication: DIABETES MELLITUS
     Dates: start: 201310
  2. EMCONCOR [Concomitant]
     Active Substance: BISOPROLOL FUMARATE
     Dosage: 1/2 NOS
  3. ALDACTONE [Concomitant]
     Active Substance: SPIRONOLACTONE
     Dosage: 25MG
  4. TOUJEO [Suspect]
     Active Substance: INSULIN GLARGINE
     Indication: TYPE 2 DIABETES MELLITUS
     Dosage: DOSE:5 UNIT(S)
     Route: 065
     Dates: start: 201606
  5. CEDOCARD [Concomitant]
     Active Substance: ISOSORBIDE DINITRATE
  6. LASIX [Concomitant]
     Active Substance: FUROSEMIDE
  7. SOLOSTAR [Concomitant]
     Active Substance: DEVICE
     Indication: TYPE 2 DIABETES MELLITUS
     Dates: start: 201606
  8. EMCONCOR [Concomitant]
     Active Substance: BISOPROLOL FUMARATE
     Dosage: 1/2 NOS
  9. PANTOMED [Concomitant]
     Active Substance: DEXPANTHENOL

REACTIONS (7)
  - Pyrexia [Unknown]
  - Lung infection [Fatal]
  - Cerebral haemorrhage [Fatal]
  - Urinary tract infection [Unknown]
  - Viral infection [Unknown]
  - Blood pressure abnormal [Unknown]
  - Oxygen saturation decreased [Unknown]

NARRATIVE: CASE EVENT DATE: 2017
